FAERS Safety Report 9915594 (Version 1)
Quarter: 2014Q1

REPORT INFORMATION
  Report Type: Report from Study
  Country: US (occurrence: US)
  Receive Date: 20140221
  Receipt Date: 20140221
  Transmission Date: 20141002
  Serious: Yes (Other)
  Sender: FDA-Public Use
  Company Number: US-ROCHE-1342153

PATIENT
  Sex: Female

DRUGS (8)
  1. LUCENTIS [Suspect]
     Indication: AGE-RELATED MACULAR DEGENERATION
     Route: 050
  2. AVASTIN [Suspect]
     Indication: PRODUCT USED FOR UNKNOWN INDICATION
     Dosage: OD
     Route: 065
     Dates: start: 20110509
  3. GENTAMICIN [Concomitant]
     Route: 065
  4. VISINE [Concomitant]
     Dosage: OU
     Route: 065
  5. LISINOPRIL [Concomitant]
     Route: 065
     Dates: end: 20110801
  6. WARFARIN [Concomitant]
     Route: 065
  7. OCUFLOX [Concomitant]
     Dosage: @ HS
     Route: 065
  8. MYDRIACYL [Concomitant]
     Route: 065

REACTIONS (5)
  - Eye pruritus [Unknown]
  - Metamorphopsia [Unknown]
  - Off label use [Unknown]
  - Visual impairment [Unknown]
  - Cataract [Unknown]
